FAERS Safety Report 24930226 (Version 1)
Quarter: 2025Q1

REPORT INFORMATION
  Report Type: Spontaneous
  Country: US (occurrence: US)
  Receive Date: 20250205
  Receipt Date: 20250205
  Transmission Date: 20250409
  Serious: No
  Sender: PFIZER
  Company Number: US-PFIZER INC-PV202500013302

PATIENT
  Age: 37 Year
  Sex: Female

DRUGS (12)
  1. MEDROL [Suspect]
     Active Substance: METHYLPREDNISOLONE
  2. TYLENOL [Concomitant]
     Active Substance: ACETAMINOPHEN
  3. VITAMIN D3 [Concomitant]
     Active Substance: CHOLECALCIFEROL
  4. VYEPTI [Concomitant]
     Active Substance: EPTINEZUMAB-JJMR
  5. NEURONTIN [Concomitant]
     Active Substance: GABAPENTIN
  6. CYTOMEL [Concomitant]
     Active Substance: LIOTHYRONINE SODIUM
  7. REMERON [Concomitant]
     Active Substance: MIRTAZAPINE
  8. ZOFRAN [Concomitant]
     Active Substance: ONDANSETRON HYDROCHLORIDE
  9. DITROPAN [Concomitant]
     Active Substance: OXYBUTYNIN CHLORIDE
  10. LYRICA [Concomitant]
     Active Substance: PREGABALIN
  11. TIROSINT [Concomitant]
     Active Substance: LEVOTHYROXINE SODIUM
  12. TOPAMAX [Concomitant]
     Active Substance: TOPIRAMATE

REACTIONS (1)
  - Drug ineffective [Unknown]
